FAERS Safety Report 7419767-3 (Version None)
Quarter: 2011Q2

REPORT INFORMATION
  Report Type: 
  Country: None (occurrence: None)
  Receive Date: 20110413
  Receipt Date: 20110413
  Transmission Date: 20111010
  Serious: Yes (Hospitalization)
  Sender: FDA-Public Use
  Company Number: None

PATIENT
  Sex: Male
  Weight: 72.5755 kg

DRUGS (1)
  1. TRAMADOL HCL [Suspect]
     Indication: PAIN
     Dosage: 1/2 TABLET 3X DAILY
     Dates: start: 20100401, end: 20110301

REACTIONS (3)
  - HALLUCINATION [None]
  - POOR QUALITY SLEEP [None]
  - DRUG WITHDRAWAL SYNDROME [None]
